FAERS Safety Report 5584357-4 (Version None)
Quarter: 2008Q1

REPORT INFORMATION
  Report Type: 
  Country: None (occurrence: None)
  Receive Date: 20080108
  Receipt Date: 20071228
  Transmission Date: 20080703
  Serious: Yes (Hospitalization)
  Sender: FDA-Public Use
  Company Number: US-JNJFOC-20080100012

PATIENT
  Sex: Female
  Weight: 48.08 kg

DRUGS (5)
  1. FENTANYL TRANSDERMAL SYSTEM [Suspect]
     Indication: BACK PAIN
     Route: 062
  2. ALBUTEROL [Concomitant]
     Indication: EMPHYSEMA
     Route: 055
  3. ADVAIR DISKUS 100/50 [Concomitant]
     Indication: EMPHYSEMA
     Route: 055
  4. CYMBALTA [Concomitant]
     Indication: DEPRESSION
     Route: 048
  5. KLONOPIN [Concomitant]
     Indication: SLEEP DISORDER
     Route: 048

REACTIONS (5)
  - BLOOD GASES ABNORMAL [None]
  - EMPHYSEMA [None]
  - INCORRECT DRUG ADMINISTRATION DURATION [None]
  - NIGHT SWEATS [None]
  - PAIN [None]
